FAERS Safety Report 25262028 (Version 1)
Quarter: 2025Q2

REPORT INFORMATION
  Report Type: Spontaneous
  Country: US (occurrence: US)
  Receive Date: 20250502
  Receipt Date: 20250502
  Transmission Date: 20250717
  Serious: No
  Sender: Kenvue
  Company Number: US-KENVUE-20250407907

PATIENT
  Age: 74 Year
  Sex: Female

DRUGS (2)
  1. MENS ROGAINE EXTRA STRENGTH [Suspect]
     Active Substance: MINOXIDIL
     Indication: Product used for unknown indication
     Dosage: HALF A CAPFUL, ONCE A DAY EVERY AFTER SHOWER
     Route: 065
     Dates: start: 20250118
  2. Nutrafol [Concomitant]
     Indication: Product used for unknown indication
     Route: 065

REACTIONS (2)
  - Intentional product misuse [Unknown]
  - Product use issue [Unknown]

NARRATIVE: CASE EVENT DATE: 20250118
